FAERS Safety Report 4844945-7 (Version None)
Quarter: 2005Q4

REPORT INFORMATION
  Report Type: 
  Country: None (occurrence: None)
  Receive Date: 20051201
  Receipt Date: 20051201
  Transmission Date: 20060501
  Serious: Yes (Disabling)
  Sender: FDA-Public Use
  Company Number: None

PATIENT
  Age: 81 Year
  Sex: Female
  Weight: 74.5 kg

DRUGS (2)
  1. LANSOPRAZOLE [Suspect]
     Indication: PROPHYLAXIS
     Dosage: 30 MG DAILY PO
     Route: 048
     Dates: start: 20051105, end: 20051122
  2. LANSOPRAZOLE [Suspect]
     Indication: STRESS ULCER
     Dosage: 30 MG DAILY PO
     Route: 048
     Dates: start: 20051105, end: 20051122

REACTIONS (1)
  - DIARRHOEA [None]
